FAERS Safety Report 10348965 (Version 1)
Quarter: 2014Q3

REPORT INFORMATION
  Report Type: Spontaneous
  Country: US (occurrence: US)
  Receive Date: 20140729
  Receipt Date: 20140729
  Transmission Date: 20150326
  Serious: No
  Sender: FDA-Public Use
  Company Number: US-BAUSCH-BL-2013-003986

PATIENT
  Age: 51 Year
  Sex: Female
  Weight: 63.56 kg

DRUGS (2)
  1. OPCON-A [Suspect]
     Active Substance: NAPHAZOLINE HYDROCHLORIDE\PHENIRAMINE MALEATE
     Dosage: 1 DROP; THREE TIMES DAILY; LEFT EYE
     Route: 047
     Dates: start: 20130514, end: 20130516
  2. OPCON-A [Suspect]
     Active Substance: NAPHAZOLINE HYDROCHLORIDE\PHENIRAMINE MALEATE
     Indication: EYE ALLERGY
     Dosage: 1 DROP; THREE TIMES DAILY; RIGHT EYE
     Route: 047
     Dates: start: 20130514, end: 20130516

REACTIONS (2)
  - Retinal disorder [Recovered/Resolved]
  - Vision blurred [Not Recovered/Not Resolved]

NARRATIVE: CASE EVENT DATE: 20130516
